FAERS Safety Report 15905898 (Version 2)
Quarter: 2019Q1

REPORT INFORMATION
  Report Type: Spontaneous
  Country: US (occurrence: US)
  Receive Date: 20190204
  Receipt Date: 20190329
  Transmission Date: 20190417
  Serious: Yes (Disabling)
  Sender: FDA-Public Use
  Company Number: US-REGENERON PHARMACEUTICALS, INC.-2019-14459

PATIENT

DRUGS (4)
  1. EYLEA [Suspect]
     Active Substance: AFLIBERCEPT
     Dosage: 2 MG, A LITTLE OVER ONCE A MONTH
     Route: 031
     Dates: start: 20180727, end: 20180727
  2. EYLEA [Suspect]
     Active Substance: AFLIBERCEPT
     Dosage: 2 MG, A LITTLE OVER ONCE A MONTH, LAST INJECTION
     Route: 031
     Dates: start: 20180824, end: 20180824
  3. EYLEA [Suspect]
     Active Substance: AFLIBERCEPT
     Indication: NEOVASCULAR AGE-RELATED MACULAR DEGENERATION
     Dosage: 2 MG, A LITTLE OVER ONCE A MONTH
     Route: 031
     Dates: start: 20180518, end: 20180824
  4. EYLEA [Suspect]
     Active Substance: AFLIBERCEPT
     Indication: CHOROIDAL NEOVASCULARISATION
     Dosage: 2 MG, A LITTLE OVER ONCE A MONTH
     Route: 031
     Dates: start: 20180622, end: 20180622

REACTIONS (7)
  - Speech disorder [Unknown]
  - Drug intolerance [Unknown]
  - Balance disorder [Recovered/Resolved]
  - Fall [Recovered/Resolved]
  - Tremor [Recovered/Resolved]
  - Dizziness [Unknown]
  - Gait disturbance [Recovered/Resolved]

NARRATIVE: CASE EVENT DATE: 201806
